FAERS Safety Report 4334353-X (Version None)
Quarter: 2004Q2

REPORT INFORMATION
  Report Type: 
  Country: None (occurrence: None)
  Receive Date: 20040405
  Receipt Date: 20040325
  Transmission Date: 20050107
  Serious: Yes (Hospitalization)
  Sender: FDA-Public Use
  Company Number: 02100-JPN-04-0049

PATIENT
  Age: 70 Year
  Sex: Male

DRUGS (9)
  1. CILOSTAZOL [Suspect]
     Indication: CEREBRAL INFARCTION
     Dosage: 200 MG/ ORAL
     Route: 048
     Dates: start: 20031017, end: 20031222
  2. CILOSTAZOL [Suspect]
     Indication: CEREBRAL INFARCTION
     Dosage: 200 MG/ ORAL
     Route: 048
     Dates: start: 20040127, end: 20040206
  3. FAMOTIDINE [Concomitant]
  4. ASPIRIN/DIALUMINATE [Concomitant]
  5. ETHYL ICOSAPENTATE [Concomitant]
  6. NICERGOLINE [Concomitant]
  7. LOSARTAN POTASSIUM [Concomitant]
  8. AMLODIPINE BESYLATE [Concomitant]
  9. CARBAMAZEPINE [Concomitant]

REACTIONS (4)
  - ALANINE AMINOTRANSFERASE INCREASED [None]
  - ASPARTATE AMINOTRANSFERASE INCREASED [None]
  - HEPATIC FUNCTION ABNORMAL [None]
  - RASH [None]
